FAERS Safety Report 8426372-9 (Version None)
Quarter: 2012Q2

REPORT INFORMATION
  Report Type: 
  Country: None (occurrence: None)
  Receive Date: 20120611
  Receipt Date: 20120610
  Transmission Date: 20120825
  Serious: No
  Sender: FDA-Public Use
  Company Number: US-PFIZER INC-2012139347

PATIENT
  Sex: Female

DRUGS (1)
  1. LYRICA [Suspect]
     Dosage: 50 MG, UNK
     Route: 048
     Dates: start: 20120606

REACTIONS (5)
  - PYREXIA [None]
  - DIZZINESS [None]
  - MALAISE [None]
  - MYALGIA [None]
  - NAUSEA [None]
